FAERS Safety Report 14874752 (Version 1)
Quarter: 2018Q2

REPORT INFORMATION
  Report Type: Report from Study
  Country: AR (occurrence: AR)
  Receive Date: 20180510
  Receipt Date: 20180510
  Transmission Date: 20180711
  Serious: Yes (Other)
  Sender: FDA-Public Use
  Company Number: AR-MYLANLABS-2018M1030961

PATIENT
  Age: 11 Year

DRUGS (1)
  1. METHOTREXATE. [Suspect]
     Active Substance: METHOTREXATE
     Indication: ACUTE LYMPHOCYTIC LEUKAEMIA
     Dosage: RECEIVED METHOTREXATE AS PER PROTOCOL ALLIC BFM 02
     Route: 041

REACTIONS (1)
  - Transient ischaemic attack [Recovered/Resolved]
